FAERS Safety Report 15067166 (Version 1)
Quarter: 2018Q2

REPORT INFORMATION
  Report Type: Report from Study
  Country: BR (occurrence: BR)
  Receive Date: 20180626
  Receipt Date: 20180626
  Transmission Date: 20180711
  Serious: Yes (Other)
  Sender: FDA-Public Use
  Company Number: PHHY2018BR029321

PATIENT
  Age: 30 Year
  Sex: Female
  Weight: 63 kg

DRUGS (3)
  1. SANDOSTATIN LAR DEPOT [Suspect]
     Active Substance: OCTREOTIDE ACETATE
     Indication: ACROMEGALY
     Dosage: 20 MG, QMO (EVERY 28 DAYS)
     Route: 030
     Dates: start: 2015
  2. SIGNIFOR [Suspect]
     Active Substance: PASIREOTIDE
     Indication: ACROMEGALY
     Dosage: 60 MG, QMO (EVERY 28 DAYS)
     Route: 030
     Dates: start: 2016
  3. SANDOSTATIN LAR DEPOT [Suspect]
     Active Substance: OCTREOTIDE ACETATE
     Dosage: 30 MG, QMO
     Route: 030
     Dates: start: 2016

REACTIONS (2)
  - Breast cancer [Unknown]
  - Drug ineffective [Unknown]

NARRATIVE: CASE EVENT DATE: 201612
